FAERS Safety Report 10710538 (Version 1)
Quarter: 2015Q1

REPORT INFORMATION
  Report Type: Report from Study
  Country: GB (occurrence: GB)
  Receive Date: 20150114
  Receipt Date: 20150114
  Transmission Date: 20150721
  Serious: Yes (Hospitalization)
  Sender: FDA-Public Use
  Company Number: GB-JNJFOC-20150103470

PATIENT
  Age: 56 Year
  Sex: Male
  Weight: 100 kg

DRUGS (10)
  1. STELARA [Suspect]
     Active Substance: USTEKINUMAB
     Indication: PSORIASIS
     Route: 058
     Dates: start: 20131105
  2. ASPIRIN. [Concomitant]
     Active Substance: ASPIRIN
     Route: 065
     Dates: start: 20080822
  3. PREGABALIN. [Concomitant]
     Active Substance: PREGABALIN
     Route: 065
     Dates: start: 20140915
  4. CIPROFLOXACIN. [Concomitant]
     Active Substance: CIPROFLOXACIN
     Route: 065
     Dates: start: 20141208, end: 20141215
  5. CITALOPRAM [Concomitant]
     Active Substance: CITALOPRAM HYDROBROMIDE
     Route: 065
     Dates: start: 20131015
  6. TRANDOLAPRIL. [Concomitant]
     Active Substance: TRANDOLAPRIL
     Route: 065
     Dates: start: 20080730
  7. SERETIDE [Concomitant]
     Active Substance: FLUTICASONE FUROATE\SALMETEROL XINAFOATE
     Route: 065
     Dates: start: 20040102
  8. VENTOLIN [Concomitant]
     Active Substance: ALBUTEROL SULFATE
     Route: 065
     Dates: start: 20020523
  9. HYDROXYCARBAMIDE [Concomitant]
     Active Substance: HYDROXYUREA
     Route: 065
     Dates: start: 20130920
  10. OMEPRAZOLE. [Concomitant]
     Active Substance: OMEPRAZOLE
     Route: 065
     Dates: start: 20080418

REACTIONS (3)
  - Gastroenteritis [Recovered/Resolved]
  - Renal impairment [Recovered/Resolved]
  - Jaundice [Unknown]

NARRATIVE: CASE EVENT DATE: 20140124
